FAERS Safety Report 18366199 (Version 3)
Quarter: 2020Q4

REPORT INFORMATION
  Report Type: Spontaneous
  Country: US (occurrence: US)
  Receive Date: 20201009
  Receipt Date: 20201201
  Transmission Date: 20210114
  Serious: Yes (Hospitalization)
  Sender: FDA-Public Use
  Company Number: US-ASTRAZENECA-2020SF29363

PATIENT
  Age: 947 Month
  Sex: Female
  Weight: 55.8 kg

DRUGS (2)
  1. SYMBICORT [Suspect]
     Active Substance: BUDESONIDE\FORMOTEROL FUMARATE DIHYDRATE
     Indication: HYPERSENSITIVITY
     Dosage: 160/4.5 MCG 2 PUFFS BID
     Route: 055
     Dates: start: 202005
  2. SYMBICORT [Suspect]
     Active Substance: BUDESONIDE\FORMOTEROL FUMARATE DIHYDRATE
     Indication: HYPERSENSITIVITY
     Route: 055

REACTIONS (6)
  - Intentional device misuse [Unknown]
  - Drug delivery system malfunction [Unknown]
  - Intentional product misuse [Unknown]
  - Asthma [Unknown]
  - Illness [Recovering/Resolving]
  - Dyspnoea [Unknown]

NARRATIVE: CASE EVENT DATE: 202005
